FAERS Safety Report 4846193-3 (Version None)
Quarter: 2005Q4

REPORT INFORMATION
  Report Type: 
  Country: None (occurrence: None)
  Receive Date: 20051206
  Receipt Date: 20051109
  Transmission Date: 20060501
  Serious: Yes (Hospitalization)
  Sender: FDA-Public Use
  Company Number: US-MERCK-0511USA02647

PATIENT

DRUGS (4)
  1. INDOCIN [Suspect]
     Route: 048
  2. CLINORIL [Suspect]
     Route: 048
  3. PROQUAZONE [Suspect]
     Route: 065
  4. TOLFENAMIC ACID [Suspect]
     Route: 065

REACTIONS (1)
  - DRUG ERUPTION [None]
